FAERS Safety Report 19376826 (Version 2)
Quarter: 2021Q2

REPORT INFORMATION
  Report Type: Report from Study
  Country: HU (occurrence: HU)
  Receive Date: 20210604
  Receipt Date: 20210608
  Transmission Date: 20210717
  Serious: Yes (Life-Threatening, Hospitalization)
  Sender: FDA-Public Use
  Company Number: HU-ROCHE-2841227

PATIENT
  Age: 70 Year
  Sex: Male
  Weight: 81.1 kg

DRUGS (8)
  1. COVEREX AS [Concomitant]
     Active Substance: PERINDOPRIL ARGININE
  2. COVEREX AS KOMB [Concomitant]
  3. APRANAX [Concomitant]
     Active Substance: NAPROXEN
  4. COVID?19 VACCINE [Concomitant]
  5. TIRAGOLUMAB. [Suspect]
     Active Substance: TIRAGOLUMAB
     Indication: SQUAMOUS CELL CARCINOMA OF HEAD AND NECK
     Dosage: START DATE OF MOST RECENT DOSE OF STUDY DRUG PRIOR TO AE/SAE 11/MAY/2021
     Route: 042
     Dates: start: 20210511
  6. SOLU?MEDROL [Concomitant]
     Active Substance: METHYLPREDNISOLONE SODIUM SUCCINATE
     Route: 042
     Dates: start: 20210511, end: 20210511
  7. ATEZOLIZUMAB. [Suspect]
     Active Substance: ATEZOLIZUMAB
     Indication: SQUAMOUS CELL CARCINOMA OF HEAD AND NECK
     Dosage: START DATE OF MOST RECENT DOSE OF STUDY DRUG PRIOR TO AE 11/MAY/2021
     Route: 041
     Dates: start: 20210511
  8. DORETA [Concomitant]
     Active Substance: ACETAMINOPHEN\TRAMADOL HYDROCHLORIDE

REACTIONS (1)
  - Immune-mediated hepatic disorder [Recovering/Resolving]

NARRATIVE: CASE EVENT DATE: 20210531
